FAERS Safety Report 14260674 (Version 6)
Quarter: 2018Q2

REPORT INFORMATION
  Report Type: Spontaneous
  Country: GR (occurrence: GR)
  Receive Date: 20171207
  Receipt Date: 20180516
  Transmission Date: 20180711
  Serious: Yes (Other)
  Sender: FDA-Public Use
  Company Number: GR-MYLANLABS-2017M1076883

PATIENT
  Age: 67 Year
  Sex: Female

DRUGS (6)
  1. DARATUMUMAB [Suspect]
     Active Substance: DARATUMUMAB
     Indication: PLASMA CELL MYELOMA
     Dosage: 16 MG/KG, UNK
  2. DEXAMETHASONE. [Suspect]
     Active Substance: DEXAMETHASONE
     Indication: PLASMA CELL MYELOMA
     Dosage: 40 MG, QW (DOSAGE FORM: UNKNOWN, 40MG EVERY WEEK IN A 28 DAY CYCLE)
     Route: 048
  3. REVLIMID [Suspect]
     Active Substance: LENALIDOMIDE
     Indication: PLASMA CELL MYELOMA
     Dosage: UNK
     Route: 048
  4. DARATUMUMAB [Suspect]
     Active Substance: DARATUMUMAB
     Dosage: UNK, QD
     Dates: start: 20140301, end: 20160201
  5. REVLIMID [Suspect]
     Active Substance: LENALIDOMIDE
     Dosage: UNK
     Route: 065
     Dates: start: 20140301, end: 20160201
  6. DARATUMUMAB [Suspect]
     Active Substance: DARATUMUMAB
     Dosage: RESTARTED
     Route: 065

REACTIONS (3)
  - Pancytopenia [Recovered/Resolved]
  - Visceral leishmaniasis [Unknown]
  - Splenomegaly [Recovered/Resolved]
